FAERS Safety Report 12837235 (Version 2)
Quarter: 2016Q4

REPORT INFORMATION
  Report Type: Spontaneous
  Country: GB (occurrence: GB)
  Receive Date: 20161011
  Receipt Date: 20161013
  Transmission Date: 20170207
  Serious: Yes (Death, Hospitalization, Other)
  Sender: FDA-Public Use
  Company Number: GB-SA-2016SA184165

PATIENT
  Age: 13 Year
  Sex: Female

DRUGS (22)
  1. METHYLPREDNISOLONE HYDROGEN SUCCINATE [Suspect]
     Active Substance: METHYLPREDNISOLONE HEMISUCCINATE
     Indication: JUVENILE IDIOPATHIC ARTHRITIS
     Route: 042
     Dates: end: 200402
  2. VANCOMYCIN [Suspect]
     Active Substance: VANCOMYCIN
     Indication: EVIDENCE BASED TREATMENT
     Route: 065
     Dates: start: 200402, end: 20040225
  3. ANAKINRA [Suspect]
     Active Substance: ANAKINRA
     Indication: POLYARTHRITIS
     Route: 065
  4. METHYLPREDNISOLONE HYDROGEN SUCCINATE [Suspect]
     Active Substance: METHYLPREDNISOLONE HEMISUCCINATE
     Indication: JUVENILE IDIOPATHIC ARTHRITIS
     Dosage: (IV. 30 MG/KG/DAY;MAX 1G) AS 3-DAY COURSE OR A SINGLE DOSE (WEEKLY OR OTHERWISE), WHEN INDICATED
     Route: 042
  5. VANCOMYCIN [Suspect]
     Active Substance: VANCOMYCIN
     Indication: EVIDENCE BASED TREATMENT
     Route: 065
     Dates: start: 200402
  6. ETANERCEPT [Suspect]
     Active Substance: ETANERCEPT
     Indication: JUVENILE IDIOPATHIC ARTHRITIS
     Route: 065
     Dates: start: 200305, end: 200401
  7. METHOTREXATE. [Suspect]
     Active Substance: METHOTREXATE
     Indication: POLYARTHRITIS
     Route: 058
     Dates: end: 200402
  8. CEFOTAXIME SODIUM [Suspect]
     Active Substance: CEFOTAXIME SODIUM
     Route: 065
     Dates: start: 200402, end: 20040225
  9. RITUXIMAB [Suspect]
     Active Substance: RITUXIMAB
     Indication: POLYARTHRITIS
     Route: 065
  10. TEICOPLANIN [Concomitant]
     Active Substance: TEICOPLANIN
     Indication: EVIDENCE BASED TREATMENT
     Dates: start: 200402, end: 200402
  11. CEFOTAXIME SODIUM [Suspect]
     Active Substance: CEFOTAXIME SODIUM
     Indication: STAPHYLOCOCCAL INFECTION
     Route: 065
     Dates: start: 200402, end: 20040225
  12. CEFOTAXIME SODIUM [Suspect]
     Active Substance: CEFOTAXIME SODIUM
     Indication: STAPHYLOCOCCAL INFECTION
     Route: 065
     Dates: start: 200402
  13. CEFOTAXIME SODIUM [Suspect]
     Active Substance: CEFOTAXIME SODIUM
     Route: 065
     Dates: start: 200402
  14. PREDNISOLONE. [Suspect]
     Active Substance: PREDNISOLONE
     Indication: JUVENILE IDIOPATHIC ARTHRITIS
     Dosage: PREDNISOLONE MAINTENANCE DOSE (ORALLY 0.5-1 MG/KG/D)
     Route: 048
     Dates: end: 2004
  15. VANCOMYCIN [Suspect]
     Active Substance: VANCOMYCIN
     Indication: STAPHYLOCOCCAL INFECTION
     Route: 065
     Dates: start: 200402, end: 20040225
  16. INFLIXIMAB [Suspect]
     Active Substance: INFLIXIMAB
     Indication: JUVENILE IDIOPATHIC ARTHRITIS
     Route: 065
     Dates: start: 200402, end: 200402
  17. INFLIXIMAB [Suspect]
     Active Substance: INFLIXIMAB
     Indication: POLYARTHRITIS
     Route: 065
     Dates: start: 200402, end: 200402
  18. METHOTREXATE. [Suspect]
     Active Substance: METHOTREXATE
     Indication: JUVENILE IDIOPATHIC ARTHRITIS
     Route: 058
     Dates: end: 200402
  19. ETANERCEPT [Suspect]
     Active Substance: ETANERCEPT
     Indication: POLYARTHRITIS
     Route: 065
     Dates: start: 200305, end: 200401
  20. TEICOPLANIN [Concomitant]
     Active Substance: TEICOPLANIN
     Indication: STAPHYLOCOCCAL INFECTION
     Dates: start: 200402, end: 200402
  21. MEROPENEM. [Concomitant]
     Active Substance: MEROPENEM
  22. VANCOMYCIN [Suspect]
     Active Substance: VANCOMYCIN
     Indication: STAPHYLOCOCCAL INFECTION
     Route: 065
     Dates: start: 200402

REACTIONS (24)
  - Device related infection [Fatal]
  - Hypotension [Fatal]
  - Pleural effusion [Fatal]
  - Lung infection [Fatal]
  - Cardio-respiratory arrest [Fatal]
  - Adrenal insufficiency [Unknown]
  - Rash macular [Fatal]
  - Abdominal discomfort [Fatal]
  - Vomiting [Fatal]
  - Diarrhoea [Fatal]
  - Staphylococcal infection [Fatal]
  - Bacterial sepsis [Fatal]
  - Pyrexia [Fatal]
  - Nausea [Fatal]
  - Syncope [Fatal]
  - Adrenal atrophy [Not Recovered/Not Resolved]
  - Encephalopathy [Unknown]
  - Pancreatitis [Fatal]
  - Alpha haemolytic streptococcal infection [Fatal]
  - Septic shock [Fatal]
  - Pallor [Fatal]
  - Dizziness [Fatal]
  - Pulmonary congestion [Fatal]
  - Multiple organ dysfunction syndrome [Fatal]

NARRATIVE: CASE EVENT DATE: 200402
